FAERS Safety Report 14895061 (Version 1)
Quarter: 2018Q2

REPORT INFORMATION
  Report Type: Spontaneous
  Country: US (occurrence: US)
  Receive Date: 20180515
  Receipt Date: 20180515
  Transmission Date: 20180711
  Serious: No
  Sender: FDA-Public Use
  Company Number: US-LEO PHARMA-308870

PATIENT
  Age: 81 Year
  Sex: Male

DRUGS (3)
  1. PICATO [Suspect]
     Active Substance: INGENOL MEBUTATE
     Dosage: SEVERAL DAYS AGO USED 1 TUBE FOR 2 DAYS TREAT SPOTS ON NOSE AND EACH SPOT ON THE FACE (LEFT CHEEK UN
  2. PICATO [Suspect]
     Active Substance: INGENOL MEBUTATE
     Indication: ACTINIC KERATOSIS
     Dosage: APPLY DAILY FOR 3 DAYS
     Dates: start: 20180503, end: 20180504
  3. PICATO [Suspect]
     Active Substance: INGENOL MEBUTATE
     Dosage: USE OF 1 TUBE FROM SAME BOX 6-7 MONTHS AGO, TREATMENT AREA - SEVERAL SPOTS ON FOREHEAD

REACTIONS (4)
  - Incorrect drug administration duration [Unknown]
  - Multiple use of single-use product [Unknown]
  - Inappropriate schedule of drug administration [Unknown]
  - Application site exfoliation [Recovering/Resolving]

NARRATIVE: CASE EVENT DATE: 20180504
